FAERS Safety Report 4404971-9 (Version None)
Quarter: 2004Q3

REPORT INFORMATION
  Report Type: 
  Country: None (occurrence: None)
  Receive Date: 20040719
  Receipt Date: 20040702
  Transmission Date: 20050211
  Serious: Yes (Death)
  Sender: FDA-Public Use
  Company Number: 2004S1001948

PATIENT
  Age: 24 Year
  Sex: Male

DRUGS (7)
  1. CLOZAPINE [Suspect]
     Indication: SCHIZOPHRENIA
     Dosage: 400MG QD ORAL
     Route: 048
     Dates: end: 20040622
  2. PANTOPRAZOLE [Concomitant]
  3. PAROXETINE HCL [Concomitant]
  4. DOCUSATE SODIUM [Concomitant]
  5. TOPIRMATE [Concomitant]
  6. OXYBUTYNIN [Concomitant]
  7. CLONAZEPAM [Concomitant]

REACTIONS (2)
  - ACCIDENT [None]
  - DROWNING [None]
